FAERS Safety Report 6109127-X (Version None)
Quarter: 2009Q1

REPORT INFORMATION
  Report Type: 
  Country: None (occurrence: None)
  Receive Date: 20090309
  Receipt Date: 20090309
  Transmission Date: 20090719
  Serious: Yes (Other)
  Sender: FDA-Public Use
  Company Number: None

PATIENT
  Age: 89 Year
  Sex: Female
  Weight: 55.3388 kg

DRUGS (7)
  1. DEMECLOCYCLINE HCL [Suspect]
     Indication: BLOOD SODIUM DECREASED
     Dosage: 300 MG - 2XDAILY 2XDAILY
     Dates: start: 20090122
  2. TETRACYCLINE [Suspect]
     Indication: RASH
     Dosage: 250 MG - 1X DAILY 1X DAILY
     Dates: start: 20090112
  3. SYNTHROID [Concomitant]
  4. AMLODIPINE BESYLATE [Concomitant]
  5. PRESEV [Concomitant]
  6. CITROCEL [Concomitant]
  7. CELEBREX [Concomitant]

REACTIONS (6)
  - ERYTHEMA [None]
  - OEDEMA PERIPHERAL [None]
  - SKIN DISCOLOURATION [None]
  - SKIN EXFOLIATION [None]
  - SUNBURN [None]
  - SWELLING FACE [None]
